FAERS Safety Report 17200890 (Version 1)
Quarter: 2019Q4

REPORT INFORMATION
  Report Type: Spontaneous
  Country: CA (occurrence: CA)
  Receive Date: 20191226
  Receipt Date: 20191226
  Transmission Date: 20200122
  Serious: Yes (Disabling, Other)
  Sender: FDA-Public Use
  Company Number: CA-UCBSA-2019054304

PATIENT
  Age: 60 Year
  Sex: Female

DRUGS (2)
  1. PRIMIDONE. [Concomitant]
     Active Substance: PRIMIDONE
     Indication: PRODUCT USED FOR UNKNOWN INDICATION
  2. LACOSAMIDE. [Suspect]
     Active Substance: LACOSAMIDE
     Indication: EPILEPSY
     Dosage: 200 MILLIGRAM, 2X/DAY (BID)

REACTIONS (5)
  - Tremor [Recovered/Resolved]
  - Aphasia [Recovered/Resolved]
  - Dysphemia [Recovered/Resolved]
  - Headache [Recovered/Resolved]
  - Product substitution issue [Unknown]
